FAERS Safety Report 6879257-3 (Version None)
Quarter: 2010Q3

REPORT INFORMATION
  Report Type: 
  Country: None (occurrence: None)
  Receive Date: 20100728
  Receipt Date: 20100713
  Transmission Date: 20110219
  Serious: Yes (Other)
  Sender: FDA-Public Use
  Company Number: US-TYCO HEALTHCARE/MALLINCKRODT-T201001631

PATIENT
  Age: 54 Year
  Sex: Female

DRUGS (4)
  1. METHADOSE [Suspect]
     Indication: POSTOPERATIVE ANALGESIA
     Dosage: 60 MG, QD
  2. ANALGESICS [Suspect]
     Indication: POSTOPERATIVE ANALGESIA
     Dosage: UNK
     Route: 042
  3. METHADONE HCL [Concomitant]
     Dosage: 40 MG, QD
  4. HEROIN [Concomitant]
     Dosage: UNK

REACTIONS (1)
  - POSTOPERATIVE ILEUS [None]
